FAERS Safety Report 6164476-4 (Version None)
Quarter: 2009Q2

REPORT INFORMATION
  Report Type: 
  Country: None (occurrence: None)
  Receive Date: 20090421
  Receipt Date: 20090414
  Transmission Date: 20091009
  Serious: No
  Sender: FDA-Public Use
  Company Number: 20096481

PATIENT
  Sex: Female

DRUGS (1)
  1. LIORESAL [Suspect]
     Indication: MUSCLE SPASTICITY
     Dosage: 261 MCG, DAILY, INTRATHECAL
     Route: 037

REACTIONS (2)
  - BACTERIAL INFECTION [None]
  - DEVICE RELATED INFECTION [None]
